FAERS Safety Report 5832902-3 (Version None)
Quarter: 2008Q3

REPORT INFORMATION
  Report Type: 
  Country: None (occurrence: None)
  Receive Date: 20080804
  Receipt Date: 20080731
  Transmission Date: 20090109
  Serious: Yes (Life-Threatening)
  Sender: FDA-Public Use
  Company Number: GB-BOEHRINGER INGELHEIM GMBH, GERMANY-2008-UK-01422UK

PATIENT
  Age: 57 Year
  Sex: Male

DRUGS (1)
  1. PRAMIPEXOLE DIHYDROCHLORIDE [Suspect]
     Indication: PARKINSON'S DISEASE
     Dosage: 0.18MG X  4 TIMES DAILY

REACTIONS (3)
  - DEPRESSION SUICIDAL [None]
  - HYPERSEXUALITY [None]
  - WITHDRAWAL SYNDROME [None]
